FAERS Safety Report 12974010 (Version 3)
Quarter: 2017Q4

REPORT INFORMATION
  Report Type: Report from Study
  Country: US (occurrence: US)
  Receive Date: 20161124
  Receipt Date: 20171124
  Transmission Date: 20180320
  Serious: Yes (Other)
  Sender: FDA-Public Use
  Company Number: PHEH2016US030898

PATIENT
  Sex: Female

DRUGS (1)
  1. GLEEVEC [Suspect]
     Active Substance: IMATINIB MESYLATE
     Indication: PRODUCT USED FOR UNKNOWN INDICATION
     Dosage: UNK
     Route: 065

REACTIONS (10)
  - Cardiac disorder [Unknown]
  - Epilepsy [Unknown]
  - Nasopharyngitis [Unknown]
  - Meningioma [Unknown]
  - Seizure [Unknown]
  - Leukaemia [Unknown]
  - Cardiac failure congestive [Unknown]
  - Asthenia [Unknown]
  - Amnesia [Unknown]
  - Depression [Unknown]
